FAERS Safety Report 9315061 (Version 2)
Quarter: 2013Q3

REPORT INFORMATION
  Report Type: Spontaneous
  Country: US (occurrence: US)
  Receive Date: 20130529
  Receipt Date: 20130705
  Transmission Date: 20140515
  Serious: Yes (Hospitalization, Other)
  Sender: FDA-Public Use
  Company Number: US-B.I. PHARMACEUTICALS,INC./RIDGEFIELD-2013-BI-14458BP

PATIENT
  Age: 52 Year
  Sex: Male
  Weight: 93 kg

DRUGS (6)
  1. PRADAXA [Suspect]
     Indication: ATRIAL FIBRILLATION
     Dosage: 300 MG
     Dates: start: 20110614, end: 20120211
  2. FLECAINIDE [Concomitant]
     Indication: ATRIAL FIBRILLATION
     Dosage: DAILI DOSE: 100 MG EVERY 12 HOURS
     Dates: start: 20130307
  3. DILTIAZEM ER [Concomitant]
     Indication: ATRIAL FIBRILLATION
     Dosage: 120 MG
     Dates: start: 20130219
  4. ASA [Concomitant]
     Indication: ATRIAL FIBRILLATION
     Dosage: 325 MG
  5. FLUTICASONE [Concomitant]
     Dosage: FORMULATION: NASAL SPRAY; DAILY DOSE: 2 SPRAYS/DAY
     Dates: start: 20120518
  6. MULTIVITAL [Concomitant]

REACTIONS (2)
  - Deep vein thrombosis [Recovered/Resolved with Sequelae]
  - Post thrombotic syndrome [Unknown]
